FAERS Safety Report 14287905 (Version 6)
Quarter: 2020Q2

REPORT INFORMATION
  Report Type: Spontaneous
  Country: US (occurrence: US)
  Receive Date: 20171215
  Receipt Date: 20200515
  Transmission Date: 20200713
  Serious: No
  Sender: FDA-Public Use
  Company Number: US-BIOGEN-2017BI00471406

PATIENT
  Sex: Female

DRUGS (6)
  1. AMPYRA [Concomitant]
     Active Substance: DALFAMPRIDINE
     Indication: ASTHENIA
     Route: 050
     Dates: start: 20170810, end: 20170820
  2. TECFIDERA [Suspect]
     Active Substance: DIMETHYL FUMARATE
     Indication: MULTIPLE SCLEROSIS
     Dosage: MAINTENANCE DOSE
     Route: 050
     Dates: start: 20150718
  3. VITAMIN D [Concomitant]
     Active Substance: VITAMIN D NOS
     Indication: PRODUCT USED FOR UNKNOWN INDICATION
     Route: 050
  4. AMPYRA [Concomitant]
     Active Substance: DALFAMPRIDINE
     Route: 065
  5. TECFIDERA [Suspect]
     Active Substance: DIMETHYL FUMARATE
     Route: 050
     Dates: start: 20150716
  6. AMPYRA [Concomitant]
     Active Substance: DALFAMPRIDINE
     Route: 065

REACTIONS (4)
  - Blood test abnormal [Unknown]
  - Alopecia [Not Recovered/Not Resolved]
  - Hot flush [Unknown]
  - Flushing [Not Recovered/Not Resolved]
